FAERS Safety Report 8304724 (Version 2)
Quarter: 2014Q1

REPORT INFORMATION
  Report Type: Spontaneous
  Country: AT (occurrence: AT)
  Receive Date: 20111221
  Receipt Date: 20140218
  Transmission Date: 20141002
  Serious: Yes (Other)
  Sender: FDA-Public Use
  Company Number: AT-BAYER-2011-122220

PATIENT
  Age: 68 Year
  Sex: Female

DRUGS (5)
  1. NEXAVAR [Suspect]
     Indication: MALIGNANT HISTIOCYTOSIS
     Dosage: 400 MG, BID, LOW DOSE MAINTENANCE THERAPY
     Route: 048
  2. AVASTIN [Concomitant]
     Indication: MALIGNANT HISTIOCYTOSIS
     Dosage: 2 CYCLES
  3. IFOSFAMIDE [Concomitant]
     Indication: MALIGNANT HISTIOCYTOSIS
     Dosage: 2 CYCLES
  4. ETOPOSIDE [Concomitant]
     Indication: MALIGNANT HISTIOCYTOSIS
     Dosage: 2 CYCLES
  5. CARBOPLATIN [Concomitant]
     Indication: MALIGNANT HISTIOCYTOSIS
     Dosage: 2 CYCLES

REACTIONS (2)
  - Pancreatic enzymes increased [Unknown]
  - Off label use [None]
